FAERS Safety Report 9652015 (Version 9)
Quarter: 2015Q3

REPORT INFORMATION
  Report Type: Spontaneous
  Country: US (occurrence: US)
  Receive Date: 20131029
  Receipt Date: 20150713
  Transmission Date: 20151125
  Serious: Yes (Life-Threatening, Hospitalization, Disabling, Other)
  Sender: FDA-Public Use
  Company Number: US-009507513-1310USA010700

PATIENT
  Sex: Female
  Weight: 94.79 kg

DRUGS (4)
  1. FOSAMAX [Suspect]
     Active Substance: ALENDRONATE SODIUM
     Indication: OSTEOPOROSIS
     Dosage: 70 MG, QW
     Route: 048
     Dates: start: 200104, end: 20080128
  2. FOSAMAX [Suspect]
     Active Substance: ALENDRONATE SODIUM
     Indication: OSTEOPENIA
  3. ALENDRONATE SODIUM. [Suspect]
     Active Substance: ALENDRONATE SODIUM
     Indication: OSTEOPOROSIS
     Dosage: 70 MG, QW
     Route: 048
     Dates: start: 20080218, end: 20091026
  4. ALENDRONATE SODIUM. [Suspect]
     Active Substance: ALENDRONATE SODIUM
     Indication: OSTEOPENIA

REACTIONS (43)
  - Osteoarthritis [Not Recovered/Not Resolved]
  - Soft tissue infection [Unknown]
  - Insomnia [Unknown]
  - Peripheral vascular disorder [Unknown]
  - Tibia fracture [Unknown]
  - Osteoporosis [Unknown]
  - Fall [Unknown]
  - Joint effusion [Unknown]
  - Staphylococcal skin infection [Unknown]
  - Femur fracture [Recovering/Resolving]
  - Rectal haemorrhage [Unknown]
  - Stress fracture [Unknown]
  - Lower limb fracture [Unknown]
  - Weight increased [Unknown]
  - Cellulitis [Recovered/Resolved]
  - Stress fracture [Unknown]
  - Exostosis [Unknown]
  - Liver function test abnormal [Unknown]
  - Synovial cyst [Unknown]
  - Major depression [Unknown]
  - Gout [Unknown]
  - Abscess [Unknown]
  - Cellulitis [Unknown]
  - Arthritis bacterial [Unknown]
  - Arthropathy [Unknown]
  - Hand fracture [Unknown]
  - Muscular weakness [Unknown]
  - Intervertebral disc disorder [Recovered/Resolved]
  - Sepsis [Recovered/Resolved]
  - Stress fracture [Unknown]
  - Endocarditis [Unknown]
  - Pain [Unknown]
  - Hypertension [Unknown]
  - Depression [Unknown]
  - Femur fracture [Unknown]
  - Osteoarthritis [Unknown]
  - Fibula fracture [Unknown]
  - Candida infection [Unknown]
  - Ankle fracture [Recovered/Resolved]
  - Bone cyst [Unknown]
  - Foot deformity [Unknown]
  - Muscle spasms [Unknown]
  - Coronary artery disease [Unknown]

NARRATIVE: CASE EVENT DATE: 2004
